FAERS Safety Report 9877639 (Version 1)
Quarter: 2014Q1

REPORT INFORMATION
  Report Type: Spontaneous
  Country: US (occurrence: US)
  Receive Date: 20140206
  Receipt Date: 20140206
  Transmission Date: 20141002
  Serious: Yes (Other)
  Sender: FDA-Public Use
  Company Number: US-TARO PHARMACEUTICALS U.S.A., INC-2014SUN00173

PATIENT
  Age: 64 Year
  Sex: Male
  Weight: 96 kg

DRUGS (11)
  1. PHENYTOIN SODIUM [Suspect]
     Indication: STATUS EPILEPTICUS
     Dosage: 300 MG, LOADING DOSE EVERY 4 HOURS FOR 2 DOSES
     Route: 048
  2. PHENYTOIN SODIUM [Interacting]
     Dosage: 330 MG, QD
     Route: 048
  3. PHENYTOIN SODIUM [Interacting]
     Dosage: 400 MG OD
     Route: 048
  4. PHENYTOIN SODIUM [Interacting]
     Dosage: 250 MG PARTIAL BY MOUTH BOLUS
     Route: 048
  5. PHENYTOIN SODIUM [Interacting]
     Dosage: 475 MG, TABLET OD
     Route: 048
  6. RIFAMPICIN [Interacting]
     Indication: ENCEPHALITIS
     Dosage: 600 MG, OD
     Route: 048
  7. LEVETIRACETAM [Concomitant]
     Indication: STATUS EPILEPTICUS
     Dosage: 500 MG, BID
     Route: 048
  8. LACOSAMIDE [Concomitant]
     Indication: STATUS EPILEPTICUS
     Dosage: 50 MG, BID
     Route: 048
  9. ISONIAZID [Concomitant]
     Indication: ENCEPHALITIS
     Dosage: 300 MG, OD
     Route: 048
  10. ETHAMBUTOL [Concomitant]
     Indication: ENCEPHALITIS
     Dosage: 1600 MG, 1DOSE/2DAYS
     Route: 048
  11. PYRAZINAMIDE [Concomitant]
     Indication: ENCEPHALITIS
     Dosage: 1500 MG, UNK

REACTIONS (2)
  - Drug interaction [Unknown]
  - Anticonvulsant drug level decreased [Recovered/Resolved]
